FAERS Safety Report 19027522 (Version 1)
Quarter: 2021Q1

REPORT INFORMATION
  Report Type: Report from Study
  Country: NL (occurrence: NL)
  Receive Date: 20210318
  Receipt Date: 20210318
  Transmission Date: 20210420
  Serious: Yes (Other)
  Sender: FDA-Public Use
  Company Number: NL-JNJFOC-20210322457

PATIENT

DRUGS (4)
  1. IBERDOMIDE [Suspect]
     Active Substance: IBERDOMIDE
     Indication: PLASMA CELL MYELOMA
     Dosage: D114?DOSES RANGED FROM 1.0 TO 1.6 MG
     Route: 065
  2. VELCADE [Suspect]
     Active Substance: BORTEZOMIB
     Indication: PLASMA CELL MYELOMA
     Dosage: D1, D4, D8, AND D11 (C18), AND ON D1 AND D8 (C }= 9), OF EACH 21DAY CYCLE
     Route: 065
  3. DEXAMETHASONE. [Suspect]
     Active Substance: DEXAMETHASONE
     Indication: PLASMA CELL MYELOMA
  4. DARATUMUMAB [Suspect]
     Active Substance: DARATUMUMAB
     Indication: PLASMA CELL MYELOMA
     Dosage: D1, D8, D15, AND D22 (CYCLES [C]12), D1 AND D15 (C36), AND D1 (C }= 7), OF EACH 28DAY CYCLE;
     Route: 065

REACTIONS (7)
  - Neutropenia [Unknown]
  - Leukopenia [Unknown]
  - Infusion related reaction [Unknown]
  - Anaemia [Unknown]
  - Neutropenic sepsis [Unknown]
  - Thrombocytopenia [Unknown]
  - Neuropathy peripheral [Unknown]
